FAERS Safety Report 9527921 (Version 1)
Quarter: 2013Q1

REPORT INFORMATION
  Report Type: Spontaneous
  Country: US (occurrence: None)
  Receive Date: 20130313
  Receipt Date: 20130313
  Transmission Date: 20140127
  Serious: Yes (Hospitalization)
  Sender: FDA-Public Use
  Company Number: 1000038984

PATIENT
  Age: 37 Year
  Sex: Female

DRUGS (5)
  1. SAVELLA [Suspect]
     Indication: FIBROMYALGIA
     Route: 048
     Dates: start: 2011, end: 2011
  2. MELOXICAM [Suspect]
     Dates: start: 201208
  3. BACLOFEN [Suspect]
     Route: 048
     Dates: start: 201208
  4. CLONIDINE (CLONIDINE) (CLONIDINE) [Concomitant]
  5. METOPROLOL (METOPROLOL) (METOPROLOL) [Concomitant]

REACTIONS (6)
  - Suicide attempt [None]
  - Intentional overdose [None]
  - Convulsion [None]
  - Depression [None]
  - Blood pressure increased [None]
  - Palpitations [None]
